FAERS Safety Report 5014737-7 (Version None)
Quarter: 2006Q2

REPORT INFORMATION
  Report Type: 
  Country: None (occurrence: None)
  Receive Date: 20060531
  Receipt Date: 20060524
  Transmission Date: 20061013
  Serious: Yes (Hospitalization)
  Sender: FDA-Public Use
  Company Number: GB-GLAXOSMITHKLINE-B0425018A

PATIENT
  Age: 79 Year
  Sex: Female
  Weight: 68.9 kg

DRUGS (2)
  1. ROSIGLITAZONE [Suspect]
     Dosage: 4MG PER DAY
     Route: 048
     Dates: start: 20050712, end: 20060510
  2. DIGOXIN [Suspect]
     Dosage: 250MCG PER DAY
     Route: 048
     Dates: start: 20000201, end: 20060510

REACTIONS (3)
  - BRADYCARDIA [None]
  - CONDITION AGGRAVATED [None]
  - THERAPEUTIC AGENT TOXICITY [None]
